FAERS Safety Report 4872542-6 (Version None)
Quarter: 2006Q1

REPORT INFORMATION
  Report Type: 
  Country: None (occurrence: None)
  Receive Date: 20060105
  Receipt Date: 20051227
  Transmission Date: 20060701
  Serious: Yes (Other)
  Sender: FDA-Public Use
  Company Number: US-JNJFOC-20051206138

PATIENT
  Sex: Female
  Weight: 53.52 kg

DRUGS (10)
  1. REMICADE [Suspect]
     Route: 042
  2. REMICADE [Suspect]
     Indication: CROHN'S DISEASE
     Route: 042
  3. PREDNISONE [Concomitant]
     Indication: CROHN'S DISEASE
  4. XANAX [Concomitant]
  5. PAIN MEDICATION [Concomitant]
     Indication: PAIN
  6. PHENERGAN [Concomitant]
  7. RESTORIL [Concomitant]
  8. SOMA [Concomitant]
  9. LORTAB [Concomitant]
  10. LORTAB [Concomitant]
     Indication: PAIN
     Dosage: TAKEN AS NEEDED

REACTIONS (14)
  - ANXIETY [None]
  - ARTHRALGIA [None]
  - BACK PAIN [None]
  - BALANCE DISORDER [None]
  - CHEST PAIN [None]
  - DEHYDRATION [None]
  - DEPRESSION [None]
  - DYSPNOEA [None]
  - INTESTINAL RESECTION [None]
  - OEDEMA PERIPHERAL [None]
  - ORAL MUCOSAL BLISTERING [None]
  - PAIN IN EXTREMITY [None]
  - PYREXIA [None]
  - SWELLING FACE [None]
